FAERS Safety Report 25241657 (Version 5)
Quarter: 2025Q3

REPORT INFORMATION
  Report Type: Spontaneous
  Country: US (occurrence: US)
  Receive Date: 20250426
  Receipt Date: 20250805
  Transmission Date: 20251021
  Serious: Yes (Hospitalization)
  Sender: CSL BEHRING
  Company Number: US-BEH-2025201044

PATIENT
  Age: 29 Year
  Sex: Female

DRUGS (3)
  1. PRIVIGEN [Suspect]
     Active Substance: HUMAN IMMUNOGLOBULIN G
     Indication: Immunodeficiency
     Dosage: 20 G, QOW
     Route: 042
     Dates: start: 20250328
  2. PRIVIGEN [Suspect]
     Active Substance: HUMAN IMMUNOGLOBULIN G
     Indication: Chronic respiratory failure
     Dosage: 50 MG, BID
     Route: 065
  3. PRIVIGEN [Suspect]
     Active Substance: HUMAN IMMUNOGLOBULIN G
     Dosage: 20 G, QOW
     Route: 042
     Dates: start: 20250328

REACTIONS (10)
  - Gastric fistula repair [Unknown]
  - Flushing [Unknown]
  - Urticaria [Unknown]
  - Dyspnoea [Unknown]
  - Flushing [Unknown]
  - Constipation [Unknown]
  - Pharyngitis streptococcal [Unknown]
  - Staphylococcal pharyngitis [Unknown]
  - Catheter site infection [Unknown]
  - Staphylococcal infection [Unknown]

NARRATIVE: CASE EVENT DATE: 20250331
